FAERS Safety Report 7892142-3 (Version None)
Quarter: 2011Q4

REPORT INFORMATION
  Report Type: 
  Country: None (occurrence: None)
  Receive Date: 20111103
  Receipt Date: 20111027
  Transmission Date: 20120403
  Serious: Yes (Hospitalization, Other)
  Sender: FDA-Public Use
  Company Number: US-AMGEN-USASP2011055926

PATIENT
  Age: 57 Year
  Sex: Female

DRUGS (1)
  1. ENBREL [Suspect]
     Indication: RHEUMATOID ARTHRITIS
     Dosage: 50 MG, QWK
     Dates: start: 20060910

REACTIONS (11)
  - STOMATITIS [None]
  - MUCOUS STOOLS [None]
  - GINGIVITIS [None]
  - DIARRHOEA [None]
  - VISION BLURRED [None]
  - PHOTOPHOBIA [None]
  - GASTROENTERITIS [None]
  - ARTHRITIS [None]
  - MELAENA [None]
  - DISORIENTATION [None]
  - ARTHRALGIA [None]
